FAERS Safety Report 24367235 (Version 2)
Quarter: 2024Q3

REPORT INFORMATION
  Report Type: Spontaneous
  Country: US (occurrence: US)
  Receive Date: 20240926
  Receipt Date: 20240930
  Transmission Date: 20241016
  Serious: No
  Sender: ELI LILLY AND CO
  Company Number: US-ELI_LILLY_AND_COMPANY-US202409015317

PATIENT
  Age: 53 Year
  Sex: Female

DRUGS (1)
  1. VERZENIO [Suspect]
     Active Substance: ABEMACICLIB
     Indication: Disease progression
     Dosage: 150 MG, UNKNOWN
     Route: 065
     Dates: start: 20240901

REACTIONS (3)
  - Feeling hot [Unknown]
  - Diarrhoea [Unknown]
  - Fatigue [Unknown]

NARRATIVE: CASE EVENT DATE: 20240901
